FAERS Safety Report 25370087 (Version 2)
Quarter: 2025Q2

REPORT INFORMATION
  Report Type: Spontaneous
  Country: US (occurrence: US)
  Receive Date: 20250528
  Receipt Date: 20250530
  Transmission Date: 20250716
  Serious: No
  Sender: ABBVIE
  Company Number: US-ABBVIE-6293497

PATIENT
  Age: 78 Year
  Sex: Male

DRUGS (2)
  1. CYCLOSPORINE [Suspect]
     Active Substance: CYCLOSPORINE
     Indication: Dry eye
     Dosage: 1 DROP, EMULSION, STRENGTH 0.05 %
     Route: 047
     Dates: start: 202505, end: 20250514
  2. CYCLOSPORINE [Suspect]
     Active Substance: CYCLOSPORINE
     Route: 047

REACTIONS (6)
  - Eye irritation [Recovered/Resolved]
  - Therapeutic response decreased [Unknown]
  - Dry eye [Unknown]
  - Headache [Not Recovered/Not Resolved]
  - Eye pain [Not Recovered/Not Resolved]
  - Ocular discomfort [Not Recovered/Not Resolved]

NARRATIVE: CASE EVENT DATE: 20250501
